FAERS Safety Report 14034071 (Version 1)
Quarter: 2017Q4

REPORT INFORMATION
  Report Type: Spontaneous
  Country: US (occurrence: US)
  Receive Date: 20171003
  Receipt Date: 20171003
  Transmission Date: 20180321
  Serious: Yes (Life-Threatening, Hospitalization, Disabling)
  Sender: FDA-Public Use
  Company Number: None

PATIENT
  Age: 23 Year
  Sex: Female
  Weight: 61.2 kg

DRUGS (4)
  1. JUNEL FE 1.5/30 [Suspect]
     Active Substance: ETHINYL ESTRADIOL\NORETHINDRONE ACETATE
     Indication: CONTRACEPTION
     Dates: start: 20160801, end: 20170301
  2. COUMADIN [Concomitant]
     Active Substance: WARFARIN SODIUM
  3. KEPPRA [Concomitant]
     Active Substance: LEVETIRACETAM
  4. IRON [Concomitant]
     Active Substance: IRON

REACTIONS (2)
  - Cerebral haemorrhage [None]
  - Cerebrovascular accident [None]

NARRATIVE: CASE EVENT DATE: 20170406
